FAERS Safety Report 10457130 (Version 1)
Quarter: 2014Q3

REPORT INFORMATION
  Report Type: Spontaneous
  Country: US (occurrence: None)
  Receive Date: 20140915
  Receipt Date: 20140915
  Transmission Date: 20150326
  Serious: Yes (Hospitalization)
  Sender: FDA-Public Use
  Company Number: None

PATIENT
  Age: 31 Year
  Sex: Female
  Weight: 58.97 kg

DRUGS (1)
  1. ENTYVIO [Suspect]
     Active Substance: VEDOLIZUMAB
     Indication: CROHN^S DISEASE
     Dosage: 2 WEEKS
     Route: 042
     Dates: start: 20140829, end: 20140912

REACTIONS (6)
  - Feeling hot [None]
  - Palpitations [None]
  - Dizziness [None]
  - Infusion site pain [None]
  - Infusion related reaction [None]
  - Heart rate increased [None]

NARRATIVE: CASE EVENT DATE: 20140913
